FAERS Safety Report 8103770-4 (Version None)
Quarter: 2012Q1

REPORT INFORMATION
  Report Type: 
  Country: None (occurrence: None)
  Receive Date: 20120201
  Receipt Date: 20120120
  Transmission Date: 20120608
  Serious: Yes (Hospitalization)
  Sender: FDA-Public Use
  Company Number: AU-B.I. PHARMACEUTICALS,INC./RIDGEFIELD-2012-AU-00075AU

PATIENT
  Sex: Female
  Weight: 126 kg

DRUGS (11)
  1. ATACAND [Concomitant]
     Dosage: 8 MG
  2. ALDACTONE [Concomitant]
     Dosage: 100 MG
  3. SLOW-K [Concomitant]
     Dosage: 2 PER DAY
  4. LASIX [Concomitant]
     Dosage: 80MG/40MG PER DAY
  5. PEPCIDINE M 20 [Concomitant]
     Dosage: 40 MG
  6. SYMBICORT [Concomitant]
  7. BICOR [Concomitant]
     Dosage: 2.5 MG
  8. PRESSIN [Concomitant]
     Dosage: 15 MG
  9. CITALOPRAM HYDROBROMIDE [Concomitant]
  10. PRADAXA [Suspect]
     Indication: CEREBROVASCULAR ACCIDENT PROPHYLAXIS
     Dosage: 300 MG
     Dates: start: 20111105, end: 20120106
  11. PRADAXA [Suspect]
     Indication: ATRIAL FIBRILLATION
     Dosage: 220 MG
     Dates: start: 20120106

REACTIONS (2)
  - RENAL IMPAIRMENT [None]
  - RIGHT VENTRICULAR FAILURE [None]
